FAERS Safety Report 5219958-6 (Version None)
Quarter: 2007Q1

REPORT INFORMATION
  Report Type: 
  Country: None (occurrence: None)
  Receive Date: 20070125
  Receipt Date: 20070115
  Transmission Date: 20070707
  Serious: Yes (Hospitalization, Other)
  Sender: FDA-Public Use
  Company Number: US-ABBOTT-07P-163-0356665-00

PATIENT
  Sex: Male
  Weight: 86.26 kg

DRUGS (3)
  1. HYTRIN [Suspect]
     Indication: DIURETIC THERAPY
     Route: 048
     Dates: start: 19900101
  2. ROZEREM [Concomitant]
     Indication: INSOMNIA
     Route: 048
     Dates: start: 20070101
  3. WELLBUTRIN XL [Concomitant]
     Indication: DEPRESSION
     Route: 048
     Dates: start: 20061001

REACTIONS (3)
  - ERECTILE DYSFUNCTION [None]
  - PROSTATIC OPERATION [None]
  - SEPSIS [None]
